FAERS Safety Report 7398118-7 (Version None)
Quarter: 2011Q2

REPORT INFORMATION
  Report Type: 
  Country: None (occurrence: None)
  Receive Date: 20110406
  Receipt Date: 20110323
  Transmission Date: 20111010
  Serious: Yes (Death)
  Sender: FDA-Public Use
  Company Number: CH-GENENTECH-315920

PATIENT
  Sex: Male

DRUGS (2)
  1. LUCENTIS [Suspect]
     Dosage: 0.5 ML, 1/MONTH
     Route: 031
     Dates: start: 20100916
  2. LUCENTIS [Suspect]
     Indication: MACULAR DEGENERATION
     Dosage: 0.5 ML, 1/MONTH
     Route: 031
     Dates: start: 20101111

REACTIONS (1)
  - ACUTE MYOCARDIAL INFARCTION [None]
